FAERS Safety Report 5163206-2 (Version None)
Quarter: 2006Q4

REPORT INFORMATION
  Report Type: 
  Country: None (occurrence: None)
  Receive Date: 20061204
  Receipt Date: 20010315
  Transmission Date: 20070319
  Serious: Yes (Hospitalization)
  Sender: FDA-Public Use
  Company Number: 2001CG00269

PATIENT
  Age: 78 Year
  Sex: Female
  Weight: 45 kg

DRUGS (5)
  1. OMEPRAZOLE [Suspect]
     Route: 048
     Dates: end: 20010208
  2. CLAMOXYL [Suspect]
     Dates: start: 20001230, end: 20010208
  3. GENTAMICIN [Concomitant]
     Dates: start: 20001230, end: 20010115
  4. ORBENIN CAP [Concomitant]
  5. RIFADIN [Concomitant]

REACTIONS (1)
  - EOSINOPHILIA [None]
